FAERS Safety Report 7342946-0 (Version None)
Quarter: 2011Q1

REPORT INFORMATION
  Report Type: 
  Country: None (occurrence: None)
  Receive Date: 20110310
  Receipt Date: 20110223
  Transmission Date: 20110831
  Serious: Yes (Other)
  Sender: FDA-Public Use
  Company Number: PHHY2011BR16336

PATIENT
  Sex: Female

DRUGS (2)
  1. RASILEZ AMLO [Suspect]
     Dosage: 150/5MG
  2. DIOVAN AMLO [Suspect]
     Dosage: 80/5 MG

REACTIONS (3)
  - DRUG INEFFECTIVE [None]
  - RENAL DISORDER [None]
  - HYPERTENSION [None]
